FAERS Safety Report 21465863 (Version 3)
Quarter: 2023Q1

REPORT INFORMATION
  Report Type: Spontaneous
  Country: JP (occurrence: JP)
  Receive Date: 20221017
  Receipt Date: 20230207
  Transmission Date: 20230417
  Serious: Yes (Hospitalization, Other)
  Sender: FDA-Public Use
  Company Number: JP-GLAXOSMITHKLINE-JP2021JPN194420

PATIENT

DRUGS (23)
  1. LAMICTAL [Suspect]
     Active Substance: LAMOTRIGINE
     Indication: Lennox-Gastaut syndrome
     Dosage: 25 MG, QOD
     Route: 048
     Dates: start: 20200214, end: 20200315
  2. LAMICTAL [Suspect]
     Active Substance: LAMOTRIGINE
     Indication: Epilepsy
     Dosage: 25 MG, QD
     Route: 048
     Dates: start: 20200316, end: 20200415
  3. LAMICTAL [Suspect]
     Active Substance: LAMOTRIGINE
     Dosage: BID
     Route: 048
     Dates: start: 20200416, end: 20200516
  4. LAMICTAL [Suspect]
     Active Substance: LAMOTRIGINE
     Dosage: BID
     Route: 048
     Dates: start: 20200517, end: 20200616
  5. LAMICTAL [Suspect]
     Active Substance: LAMOTRIGINE
     Dosage: BID
     Route: 048
     Dates: start: 20200617, end: 20201126
  6. LAMICTAL [Suspect]
     Active Substance: LAMOTRIGINE
     Dosage: BID
     Route: 048
     Dates: start: 20201127, end: 20201201
  7. LAMICTAL [Suspect]
     Active Substance: LAMOTRIGINE
     Dosage: BID
     Route: 048
     Dates: start: 20201202, end: 20201213
  8. LAMICTAL [Suspect]
     Active Substance: LAMOTRIGINE
     Dosage: BID
     Route: 048
     Dates: start: 20201214, end: 20210104
  9. VALPROATE SODIUM [Suspect]
     Active Substance: VALPROATE SODIUM
     Indication: Lennox-Gastaut syndrome
     Dosage: 160 MG, 1D
     Route: 048
     Dates: start: 201712
  10. VALPROATE SODIUM [Suspect]
     Active Substance: VALPROATE SODIUM
     Indication: Epilepsy
     Dosage: 320 MG, 1D
     Route: 048
  11. VALPROATE SODIUM [Suspect]
     Active Substance: VALPROATE SODIUM
     Dosage: 400 MG, 1D
     Route: 048
  12. VALPROATE SODIUM [Suspect]
     Active Substance: VALPROATE SODIUM
     Dosage: 480 MG, 1D
     Route: 048
  13. VALPROATE SODIUM [Suspect]
     Active Substance: VALPROATE SODIUM
     Dosage: 880 MG, 1D
     Route: 048
     Dates: end: 20201026
  14. TEGRETOL [Suspect]
     Active Substance: CARBAMAZEPINE
     Indication: Lennox-Gastaut syndrome
     Dosage: 130 MG
     Route: 048
     Dates: start: 201602
  15. TEGRETOL [Suspect]
     Active Substance: CARBAMAZEPINE
     Indication: Epilepsy
     Dosage: 250 MG, 1D
     Route: 048
  16. TEGRETOL [Suspect]
     Active Substance: CARBAMAZEPINE
     Indication: Anger
     Dosage: 470 MG, 1D
     Route: 048
  17. TEGRETOL [Suspect]
     Active Substance: CARBAMAZEPINE
     Dosage: 650 MG, 1D
     Route: 048
     Dates: end: 20201005
  18. E KEPPRA DRY SYRUP [Concomitant]
     Indication: Lennox-Gastaut syndrome
     Dosage: 300 MG, 1D
     Route: 048
     Dates: start: 201602
  19. E KEPPRA DRY SYRUP [Concomitant]
     Indication: Epilepsy
     Dosage: 650 MG, 1D
     Route: 048
  20. E KEPPRA DRY SYRUP [Concomitant]
     Dosage: 1300 MG, 1D
     Route: 048
  21. E KEPPRA DRY SYRUP [Concomitant]
     Dosage: 2000 MG, 1D
     Route: 048
  22. RIVOTRIL [Concomitant]
     Active Substance: CLONAZEPAM
     Indication: Lennox-Gastaut syndrome
     Dosage: 3.6 MG, 1D
     Route: 048
     Dates: start: 202001
  23. RIVOTRIL [Concomitant]
     Active Substance: CLONAZEPAM
     Indication: Epilepsy

REACTIONS (9)
  - Aplasia pure red cell [Recovering/Resolving]
  - Normochromic normocytic anaemia [Recovering/Resolving]
  - Dyspnoea [Recovering/Resolving]
  - Pallor [Recovering/Resolving]
  - Fatigue [Recovering/Resolving]
  - Peripheral coldness [Recovering/Resolving]
  - Prescribed overdose [Unknown]
  - Drug titration error [Unknown]
  - Inappropriate schedule of product administration [Unknown]

NARRATIVE: CASE EVENT DATE: 20201023
